FAERS Safety Report 6037504-4 (Version None)
Quarter: 2009Q1

REPORT INFORMATION
  Report Type: 
  Country: None (occurrence: None)
  Receive Date: 20090113
  Receipt Date: 20081229
  Transmission Date: 20090719
  Serious: Yes (Hospitalization)
  Sender: FDA-Public Use
  Company Number: SPV1-2008-02750

PATIENT
  Age: 55 Year
  Sex: Female
  Weight: 68 kg

DRUGS (4)
  1. VYVANSE [Suspect]
     Indication: ATTENTION DEFICIT/HYPERACTIVITY DISORDER
     Dosage: 70 MG, 1X/DAY: QD, ORAL
     Route: 048
     Dates: start: 20081124, end: 20081125
  2. LEVOXINE (LEVOTHYROXINE SODIUM) [Concomitant]
  3. MS CONTIN [Concomitant]
  4. CYTOMEL [Concomitant]

REACTIONS (10)
  - CELLULITIS [None]
  - EYE IRRITATION [None]
  - FEELING ABNORMAL [None]
  - HEADACHE [None]
  - IMPAIRED DRIVING ABILITY [None]
  - MYDRIASIS [None]
  - RASH [None]
  - RASH GENERALISED [None]
  - SPEECH DISORDER [None]
  - THINKING ABNORMAL [None]
